FAERS Safety Report 15114093 (Version 1)
Quarter: 2018Q3

REPORT INFORMATION
  Report Type: Report from Study
  Country: FR (occurrence: FR)
  Receive Date: 20180706
  Receipt Date: 20180706
  Transmission Date: 20181010
  Serious: Yes (Hospitalization, Other)
  Sender: FDA-Public Use
  Company Number: FR-VELOXIS PHARMACEUTICALS, INC.-2018VELFR0803

PATIENT
  Age: 67 Year
  Sex: Male
  Weight: 68 kg

DRUGS (23)
  1. FOLIC ACID. [Concomitant]
     Active Substance: FOLIC ACID
     Indication: ANAEMIA
     Dosage: 5 MG, QD
     Route: 065
     Dates: start: 20170811
  2. ADVAGRAF [Concomitant]
     Active Substance: TACROLIMUS
     Dosage: 8.5 MG, QD
     Dates: start: 20171122, end: 20171129
  3. CERTICAN [Concomitant]
     Active Substance: EVEROLIMUS
     Indication: RENAL TRANSPLANT
     Dosage: 2.5 MG, QD
     Dates: start: 20170811, end: 2017
  4. CERTICAN [Concomitant]
     Active Substance: EVEROLIMUS
     Dosage: 2 MG, QD
     Route: 065
     Dates: start: 20171130
  5. SODIUM BICARBONATE. [Concomitant]
     Active Substance: SODIUM BICARBONATE
     Indication: ACIDOSIS
     Dosage: 3 G, QD
     Route: 065
     Dates: start: 20170821
  6. ADVAGRAF [Concomitant]
     Active Substance: TACROLIMUS
     Dosage: 7 MG, QD
     Dates: start: 20170819, end: 20170821
  7. FUROSEMIDE. [Concomitant]
     Active Substance: FUROSEMIDE
     Indication: OEDEMA PERIPHERAL
     Dosage: 20 MG, QD
     Dates: start: 20171025
  8. ADVAGRAF [Concomitant]
     Active Substance: TACROLIMUS
     Dosage: 8 MG, QD
     Dates: start: 20170901, end: 20170906
  9. PRINCI B [Concomitant]
     Indication: ASTHENIA
     Dosage: 750 MG, QD
     Route: 065
     Dates: start: 20170816
  10. DIFFU K [Concomitant]
     Active Substance: POTASSIUM CHLORIDE
     Indication: HYPOKALAEMIA
     Dosage: 1.8 G, QD
     Route: 065
     Dates: start: 20170816, end: 20180207
  11. ADVAGRAF [Concomitant]
     Active Substance: TACROLIMUS
     Indication: RENAL TRANSPLANT
     Dosage: 8 MG, QD
     Dates: start: 20170817, end: 20170818
  12. ADVAGRAF [Concomitant]
     Active Substance: TACROLIMUS
     Dosage: 8.5 MG, QD
     Dates: start: 20170907, end: 20170920
  13. FUMAFER [Concomitant]
     Active Substance: FERROUS FUMARATE
     Indication: ANAEMIA
     Dosage: 132 MG, QD
     Route: 065
     Dates: start: 20170913
  14. ENVARSUS XR [Suspect]
     Active Substance: TACROLIMUS
     Indication: PROPHYLAXIS AGAINST TRANSPLANT REJECTION
     Dosage: 3 MG, QD
     Route: 048
     Dates: start: 20180109, end: 20180401
  15. ADVAGRAF [Concomitant]
     Active Substance: TACROLIMUS
     Dosage: 8 MG, QD
     Dates: start: 20170929, end: 20171121
  16. DARBEPOETIN ALFA [Concomitant]
     Active Substance: DARBEPOETIN ALFA
     Indication: ANAEMIA
     Dosage: 80 ?G, QD
     Route: 065
     Dates: start: 20171212
  17. MYFORTIC [Concomitant]
     Active Substance: MYCOPHENOLATE SODIUM
     Indication: RENAL TRANSPLANT
     Dosage: 540 MG, QD
     Route: 065
     Dates: start: 20170811
  18. ADVAGRAF [Concomitant]
     Active Substance: TACROLIMUS
     Dosage: 7.5 MG, QD
     Dates: start: 20170822, end: 20170830
  19. ADVAGRAF [Concomitant]
     Active Substance: TACROLIMUS
     Dosage: 7.5 MG, QD
     Dates: start: 20170921, end: 20170928
  20. IRBESARTAN. [Concomitant]
     Active Substance: IRBESARTAN
     Indication: HYPERTENSION
     Dosage: 150 MG, QD
     Route: 065
     Dates: start: 20170928, end: 20180207
  21. ESOMEPRAZOLE [Concomitant]
     Active Substance: ESOMEPRAZOLE
     Indication: GASTROOESOPHAGEAL REFLUX PROPHYLAXIS
     Dosage: 20 MG, QD
     Route: 065
     Dates: start: 20170812
  22. ADVAGRAF [Concomitant]
     Active Substance: TACROLIMUS
     Dosage: 4.5 MG, QD
     Dates: start: 20171130, end: 20180108
  23. BACTRIM [Concomitant]
     Active Substance: SULFAMETHOXAZOLE\TRIMETHOPRIM
     Indication: ANTIFUNGAL PROPHYLAXIS
     Dosage: 40 MG, QD
     Route: 065
     Dates: start: 20170811

REACTIONS (9)
  - Vitamin D deficiency [Not Recovered/Not Resolved]
  - Dysaesthesia [Not Recovered/Not Resolved]
  - Aspartate aminotransferase increased [Not Recovered/Not Resolved]
  - Biloma [Recovered/Resolved]
  - Sepsis [Recovered/Resolved]
  - Hepatocellular carcinoma [Unknown]
  - Paraesthesia [Not Recovered/Not Resolved]
  - Hypertension [Not Recovered/Not Resolved]
  - Gamma-glutamyltransferase increased [Not Recovered/Not Resolved]

NARRATIVE: CASE EVENT DATE: 20180109
